FAERS Safety Report 8470296-8 (Version None)
Quarter: 2012Q2

REPORT INFORMATION
  Report Type: 
  Country: None (occurrence: None)
  Receive Date: 20120621
  Receipt Date: 20120621
  Transmission Date: 20120825
  Serious: Yes (Other)
  Sender: FDA-Public Use
  Company Number: None

PATIENT
  Age: 43 Year
  Sex: Male
  Weight: 87.5442 kg

DRUGS (2)
  1. QUETIAPINE [Suspect]
     Indication: DEPRESSION
     Dosage: 400 MG, QHS, PO
     Route: 048
     Dates: start: 20120531
  2. PRISTIQ [Concomitant]

REACTIONS (3)
  - ANGER [None]
  - LOSS OF EMPLOYMENT [None]
  - PRODUCT SUBSTITUTION ISSUE [None]
